FAERS Safety Report 20541044 (Version 1)
Quarter: 2022Q1

REPORT INFORMATION
  Report Type: Report from Study
  Country: US (occurrence: US)
  Receive Date: 20220302
  Receipt Date: 20220302
  Transmission Date: 20220424
  Serious: Yes (Hospitalization, Other)
  Sender: FDA-Public Use
  Company Number: US-GILEAD-2022-0567155

PATIENT
  Age: 63 Year
  Sex: Female

DRUGS (3)
  1. AMBRISENTAN [Suspect]
     Active Substance: AMBRISENTAN
     Indication: Pulmonary hypertension
     Dosage: 10 MG, QD
     Route: 065
     Dates: start: 20160324
  2. REMODULIN [Concomitant]
     Active Substance: TREPROSTINIL
     Indication: Pulmonary hypertension
     Dosage: 98.4 NG/KG/MIN, CONTINUOUS
     Route: 058
     Dates: start: 20210322
  3. ADCIRCA [Concomitant]
     Active Substance: TADALAFIL

REACTIONS (2)
  - No adverse event [Unknown]
  - Product dose omission in error [Not Recovered/Not Resolved]

NARRATIVE: CASE EVENT DATE: 20220125
